FAERS Safety Report 8342771-8 (Version None)
Quarter: 2012Q2

REPORT INFORMATION
  Report Type: 
  Country: None (occurrence: None)
  Receive Date: 20120503
  Receipt Date: 20120419
  Transmission Date: 20120825
  Serious: Yes (Other)
  Sender: FDA-Public Use
  Company Number: BE-008265

PATIENT
  Age: 79 Year
  Sex: Male

DRUGS (1)
  1. FIRMAGON [Suspect]
     Indication: PROSTATE CANCER

REACTIONS (8)
  - ABSCESS [None]
  - RASH [None]
  - CHILLS [None]
  - INJECTION SITE INDURATION [None]
  - INJECTION SITE REACTION [None]
  - PALPITATIONS [None]
  - INJECTION SITE SWELLING [None]
  - MALAISE [None]
